FAERS Safety Report 5937049-3 (Version None)
Quarter: 2008Q4

REPORT INFORMATION
  Report Type: 
  Country: None (occurrence: None)
  Receive Date: 20081021
  Receipt Date: 20071105
  Transmission Date: 20090506
  Serious: Yes (Other)
  Sender: FDA-Public Use
  Company Number: HQWYE005427FEB06

PATIENT
  Age: 48 Year
  Sex: Female

DRUGS (6)
  1. PREMARIN [Suspect]
     Indication: HORMONE REPLACEMENT THERAPY
  2. CLIMARA [Suspect]
  3. ESTRADERM [Suspect]
  4. ESTRADIOL [Suspect]
  5. PROVERA [Suspect]
  6. VIVELLE [Suspect]

REACTIONS (2)
  - BENIGN BREAST NEOPLASM [None]
  - BREAST CANCER [None]
